FAERS Safety Report 7640175-4 (Version None)
Quarter: 2011Q3

REPORT INFORMATION
  Report Type: 
  Country: None (occurrence: None)
  Receive Date: 20110728
  Receipt Date: 20110630
  Transmission Date: 20111222
  Serious: No
  Sender: FDA-Public Use
  Company Number: US-BAYER-2011-058832

PATIENT
  Age: 64 Year
  Sex: Female
  Weight: 91 kg

DRUGS (7)
  1. ALEVE (CAPLET) [Suspect]
     Indication: PAIN
     Dosage: 1 DF, BID
     Route: 048
     Dates: start: 20110601
  2. LISINOPRIL [Concomitant]
  3. K-TAB [Concomitant]
  4. PRILOSEC [Concomitant]
  5. ATENOLOL [Concomitant]
  6. HYDROCHLOROTHIAZIDE [Concomitant]
  7. LEVOTHROID [Concomitant]

REACTIONS (1)
  - DYSPEPSIA [None]
